FAERS Safety Report 4868658-0 (Version None)
Quarter: 2005Q4

REPORT INFORMATION
  Report Type: 
  Country: None (occurrence: None)
  Receive Date: 20051223
  Receipt Date: 20051214
  Transmission Date: 20060501
  Serious: Yes (Life-Threatening)
  Sender: FDA-Public Use
  Company Number: 2001000244-FJ

PATIENT
  Age: 8 Year
  Sex: Male
  Weight: 20.6 kg

DRUGS (7)
  1. PROGRAF [Suspect]
     Indication: RENAL TRANSPLANT
     Dosage: SEE IMAGE
     Route: 048
     Dates: start: 20000626, end: 20000627
  2. PROGRAF [Suspect]
     Indication: RENAL TRANSPLANT
     Dosage: SEE IMAGE
     Route: 048
     Dates: start: 20000628, end: 20000628
  3. PROGRAF [Suspect]
     Indication: RENAL TRANSPLANT
     Dosage: SEE IMAGE
     Route: 048
     Dates: start: 20000629, end: 20000702
  4. METHYLPREDNISOLONE [Concomitant]
  5. MIZORIBINE (MIZORIBINE) TABLET [Concomitant]
  6. DEPAKENE [Concomitant]
  7. CELLCEPT [Concomitant]

REACTIONS (6)
  - BRAIN OEDEMA [None]
  - CEREBROVASCULAR DISORDER [None]
  - CLONIC CONVULSION [None]
  - DRUG INEFFECTIVE [None]
  - INTRACRANIAL PRESSURE INCREASED [None]
  - LEUKOENCEPHALOPATHY [None]
